FAERS Safety Report 6530221-3 (Version None)
Quarter: 2010Q1

REPORT INFORMATION
  Report Type: 
  Country: None (occurrence: None)
  Receive Date: 20100107
  Receipt Date: 20100106
  Transmission Date: 20100710
  Serious: Yes (Hospitalization)
  Sender: FDA-Public Use
  Company Number: US-B.I. PHARMACEUTICALS,INC./RIDGEFIELD-2009-BP-13789BP

PATIENT
  Sex: Male

DRUGS (1)
  1. COMBIVENT [Suspect]
     Indication: BRONCHIAL DISORDER
     Dosage: 2 TO 4 PUFFS DAILY AS NEEDED

REACTIONS (3)
  - ARTHROPATHY [None]
  - HERPES ZOSTER [None]
  - RASH [None]
